FAERS Safety Report 14930661 (Version 1)
Quarter: 2018Q2

REPORT INFORMATION
  Report Type: Spontaneous
  Country: FR (occurrence: FR)
  Receive Date: 20180523
  Receipt Date: 20180523
  Transmission Date: 20180711
  Serious: Yes (Hospitalization)
  Sender: FDA-Public Use
  Company Number: FR-TEVA-2018-FR-895175

PATIENT
  Age: 94 Year
  Sex: Female
  Weight: 71 kg

DRUGS (4)
  1. IOMERON [Interacting]
     Active Substance: IOMEPROL
     Indication: COMPUTERISED TOMOGRAM
     Dates: start: 20171130, end: 20171130
  2. ALLOPURINOL. [Suspect]
     Active Substance: ALLOPURINOL
     Indication: GOUT
     Route: 048
     Dates: start: 20171129, end: 20171201
  3. CEFTRIAXONE BASE [Interacting]
     Active Substance: CEFTRIAXONE
     Indication: PYELONEPHRITIS
     Route: 042
     Dates: start: 20171126, end: 20171201
  4. PREVISCAN 20 MG, COMPRIM? S?CABLE [Interacting]
     Active Substance: FLUINDIONE
     Indication: ATRIAL FIBRILLATION
     Route: 048
     Dates: start: 20170421, end: 20171201

REACTIONS (3)
  - Overdose [Recovered/Resolved]
  - Drug interaction [Recovered/Resolved]
  - International normalised ratio increased [Recovered/Resolved]

NARRATIVE: CASE EVENT DATE: 20171126
